FAERS Safety Report 23608694 (Version 1)
Quarter: 2024Q1

REPORT INFORMATION
  Report Type: Spontaneous
  Country: BR (occurrence: BR)
  Receive Date: 20240308
  Receipt Date: 20240308
  Transmission Date: 20240410
  Serious: Yes (Other)
  Sender: FDA-Public Use
  Company Number: BR-NOVOPROD-1185144

PATIENT
  Age: 719 Month
  Sex: Female

DRUGS (3)
  1. OZEMPIC [Suspect]
     Active Substance: SEMAGLUTIDE
     Indication: Product used for unknown indication
     Dosage: 18 CLICKS AND 36 CLICKS
  2. OZEMPIC [Suspect]
     Active Substance: SEMAGLUTIDE
     Dosage: 36 CLICKS
  3. OZEMPIC [Suspect]
     Active Substance: SEMAGLUTIDE
     Dosage: 10 CLICKS

REACTIONS (4)
  - Foot fracture [Unknown]
  - Fall [Unknown]
  - Injection site discharge [Unknown]
  - Wrong technique in product usage process [Unknown]

NARRATIVE: CASE EVENT DATE: 20240101
